FAERS Safety Report 13141327 (Version 1)
Quarter: 2017Q1

REPORT INFORMATION
  Report Type: Report from Study
  Country: IT (occurrence: IT)
  Receive Date: 20170123
  Receipt Date: 20170123
  Transmission Date: 20170428
  Serious: Yes (Other)
  Sender: FDA-Public Use
  Company Number: IT-ALLERGAN-1702573US

PATIENT
  Age: 37 Year
  Sex: Male

DRUGS (1)
  1. ESCITALOPRAM OXALATE UNK [Suspect]
     Active Substance: ESCITALOPRAM OXALATE
     Indication: ANXIETY
     Dosage: 10 GTT, QD
     Route: 048
     Dates: start: 20161221, end: 20161221

REACTIONS (4)
  - Strangury [Recovered/Resolved]
  - Nausea [Recovered/Resolved]
  - Hyperchlorhydria [Recovered/Resolved]
  - Palpitations [Recovered/Resolved]

NARRATIVE: CASE EVENT DATE: 20161221
